FAERS Safety Report 10460946 (Version 1)
Quarter: 2014Q3

REPORT INFORMATION
  Report Type: Spontaneous
  Country: US (occurrence: US)
  Receive Date: 20140918
  Receipt Date: 20140918
  Transmission Date: 20150326
  Serious: Yes (Hospitalization, Other)
  Sender: FDA-Public Use
  Company Number: US-SUN PHARMACEUTICAL INDUSTRIES LTD-2014SUN02062

PATIENT
  Age: 40 Year
  Sex: Male

DRUGS (2)
  1. VERAPAMIL HYDROCHLORIDE EXTENDED RELEASE TABLETS 240MG [Suspect]
     Active Substance: VERAPAMIL HYDROCHLORIDE
     Dosage: 14.5 G INGESTED AFTER 3 MONTHS OF INITAL OVERDOSE
     Route: 048
  2. VERAPAMIL HYDROCHLORIDE EXTENDED RELEASE TABLETS 240MG [Suspect]
     Active Substance: VERAPAMIL HYDROCHLORIDE
     Indication: PRODUCT USED FOR UNKNOWN INDICATION
     Dosage: 12 G, SINGLE
     Route: 048

REACTIONS (10)
  - Pulmonary embolism [Recovered/Resolved]
  - Intentional overdose [Recovered/Resolved]
  - Toxicity to various agents [Recovered/Resolved]
  - Renal failure [Recovered/Resolved]
  - Peripheral ischaemia [Recovered/Resolved]
  - Abdominal pain [Recovered/Resolved]
  - Hypotension [Recovered/Resolved]
  - Arterial thrombosis [Recovered/Resolved]
  - Ileus [Recovered/Resolved]
  - Bradycardia [Recovered/Resolved]
